FAERS Safety Report 8093255-6 (Version None)
Quarter: 2012Q1

REPORT INFORMATION
  Report Type: 
  Country: None (occurrence: None)
  Receive Date: 20120128
  Receipt Date: 20110908
  Transmission Date: 20120608
  Serious: No
  Sender: FDA-Public Use
  Company Number: US-ABBOTT-11P-163-0725705-00

PATIENT
  Sex: Female
  Weight: 60.836 kg

DRUGS (8)
  1. SIMVASTATIN [Concomitant]
     Indication: HYPERLIPIDAEMIA
     Route: 048
  2. TOPROL-XL [Concomitant]
  3. PROCARDIA [Concomitant]
     Indication: BLOOD CHOLESTEROL INCREASED
     Route: 048
  4. ARAVA [Concomitant]
     Indication: RHEUMATOID ARTHRITIS
  5. HUMIRA [Suspect]
     Indication: RHEUMATOID ARTHRITIS
     Route: 058
     Dates: start: 20110301
  6. TOPROL-XL [Concomitant]
     Indication: MITRAL VALVE PROLAPSE
     Route: 048
  7. HUMIRA [Suspect]
     Indication: PSORIASIS
     Dates: start: 20110301, end: 20110301
  8. MICARDIS [Concomitant]
     Indication: HYPERTENSION

REACTIONS (7)
  - INJECTION SITE PRURITUS [None]
  - INJECTION SITE HAEMATOMA [None]
  - RASH MACULAR [None]
  - INJECTION SITE RASH [None]
  - INJECTION SITE PAIN [None]
  - RASH PAPULAR [None]
  - INJECTION SITE ERYTHEMA [None]
